FAERS Safety Report 13071789 (Version 1)
Quarter: 2016Q4

REPORT INFORMATION
  Report Type: Spontaneous
  Country: IT (occurrence: IT)
  Receive Date: 20161229
  Receipt Date: 20161229
  Transmission Date: 20170207
  Serious: Yes (Hospitalization)
  Sender: FDA-Public Use
  Company Number: IT-JNJFOC-20161223832

PATIENT
  Age: 70 Year
  Sex: Male

DRUGS (5)
  1. CONGESCOR [Concomitant]
     Active Substance: BISOPROLOL
     Route: 048
     Dates: start: 20160615
  2. XARELTO [Suspect]
     Active Substance: RIVAROXABAN
     Indication: PRODUCT USED FOR UNKNOWN INDICATION
     Route: 048
     Dates: start: 20160803
  3. ALMARYTM [Concomitant]
     Active Substance: FLECAINIDE ACETATE
     Route: 048
     Dates: start: 20160825
  4. OMNIC [Concomitant]
     Active Substance: TAMSULOSIN HYDROCHLORIDE
     Route: 048
     Dates: start: 20160615
  5. FLUTICASONE W/SALMETEROL [Concomitant]
     Active Substance: FLUTICASONE PROPIONATE\SALMETEROL XINAFOATE
     Route: 055
     Dates: start: 20160615

REACTIONS (1)
  - Transient ischaemic attack [Unknown]

NARRATIVE: CASE EVENT DATE: 20161003
